FAERS Safety Report 8593508-9 (Version None)
Quarter: 2012Q3

REPORT INFORMATION
  Report Type: 
  Country: None (occurrence: None)
  Receive Date: 20120814
  Receipt Date: 20120730
  Transmission Date: 20120928
  Serious: Yes (Hospitalization)
  Sender: FDA-Public Use
  Company Number: US-WATSON-2012-11992

PATIENT
  Sex: Female
  Weight: 52.2 kg

DRUGS (2)
  1. MINOCYCLINE HCL [Suspect]
     Indication: ACNE
     Dosage: UNK
     Route: 048
     Dates: start: 20100901
  2. SEROQUEL [Suspect]
     Indication: DEPRESSION
     Dosage: UNK
     Route: 048
     Dates: start: 20120301

REACTIONS (4)
  - DISTURBANCE IN ATTENTION [None]
  - AGGRESSION [None]
  - GENDER IDENTITY DISORDER [None]
  - WEIGHT DECREASED [None]
